FAERS Safety Report 9848908 (Version 1)
Quarter: 2013Q4

REPORT INFORMATION
  Report Type: Spontaneous
  Country: US (occurrence: None)
  Receive Date: 20131226
  Receipt Date: 20131226
  Transmission Date: 20140711
  Serious: Yes (Other)
  Sender: FDA-Public Use
  Company Number: PHEH2013US005965

PATIENT
  Age: 23 Year
  Sex: Male

DRUGS (2)
  1. LAMISIL [Suspect]
     Indication: TINEA PEDIS
  2. BYSTOLIC (NEBIVOLOL HYDROCHLORIDE) [Concomitant]

REACTIONS (3)
  - Angioedema [None]
  - Swelling face [None]
  - Urticaria [None]
